FAERS Safety Report 14114500 (Version 1)
Quarter: 2017Q4

REPORT INFORMATION
  Report Type: Spontaneous
  Country: US (occurrence: US)
  Receive Date: 20171023
  Receipt Date: 20171023
  Transmission Date: 20180321
  Serious: No
  Sender: FDA-Public Use
  Company Number: US-PFIZER INC-2017453274

PATIENT
  Age: 54 Year
  Sex: Female

DRUGS (8)
  1. SULFASALAZINE. [Suspect]
     Active Substance: SULFASALAZINE
     Dosage: UNK
  2. AMOX [Suspect]
     Active Substance: UNSPECIFIED INGREDIENT
     Dosage: UNK
  3. BUPRENORPHINE. [Suspect]
     Active Substance: BUPRENORPHINE
     Dosage: UNK
  4. SULFACETAMIDE SODIUM. [Suspect]
     Active Substance: SULFACETAMIDE SODIUM
     Dosage: UNK
  5. AMOXICILLIN. [Suspect]
     Active Substance: AMOXICILLIN
     Dosage: UNK
  6. ASA [Suspect]
     Active Substance: ASPIRIN
     Dosage: UNK
  7. ASPIRIN. [Suspect]
     Active Substance: ASPIRIN
     Dosage: UNK
  8. LEVALBUTEROL. [Suspect]
     Active Substance: LEVALBUTEROL
     Dosage: UNK

REACTIONS (1)
  - Drug hypersensitivity [Unknown]
